FAERS Safety Report 9263536 (Version 1)
Quarter: 2013Q2

REPORT INFORMATION
  Report Type: Spontaneous
  Country: JP (occurrence: JP)
  Receive Date: 20130430
  Receipt Date: 20130430
  Transmission Date: 20140414
  Serious: Yes (Other)
  Sender: FDA-Public Use
  Company Number: JP-PFIZER INC-2013123982

PATIENT
  Sex: 0

DRUGS (2)
  1. UNASYN-S [Suspect]
     Dosage: UNK
     Route: 041
  2. BISOLVON [Suspect]

REACTIONS (1)
  - Blood creatine phosphokinase increased [Unknown]
